FAERS Safety Report 12232580 (Version 2)
Quarter: 2016Q2

REPORT INFORMATION
  Report Type: Spontaneous
  Country: US (occurrence: US)
  Receive Date: 20160401
  Receipt Date: 20160516
  Transmission Date: 20160815
  Serious: Yes (Other)
  Sender: FDA-Public Use
  Company Number: US-ALEXION PHARMACEUTICALS INC-A201602226

PATIENT
  Sex: Female

DRUGS (2)
  1. THRIVE                             /01033302/ [Concomitant]
     Indication: VITAMIN SUPPLEMENTATION
     Dosage: UNK
     Route: 065
  2. SOLIRIS [Suspect]
     Active Substance: ECULIZUMAB
     Indication: PAROXYSMAL NOCTURNAL HAEMOGLOBINURIA
     Dosage: UNK
     Route: 042

REACTIONS (5)
  - Malaise [Unknown]
  - Fatigue [Unknown]
  - Upper respiratory tract infection [Unknown]
  - Haemoglobin decreased [Unknown]
  - Amenorrhoea [Unknown]
